FAERS Safety Report 7495418-7 (Version None)
Quarter: 2011Q2

REPORT INFORMATION
  Report Type: 
  Country: None (occurrence: None)
  Receive Date: 20110513
  Receipt Date: 20110508
  Transmission Date: 20111010
  Serious: Yes (Other)
  Sender: FDA-Public Use
  Company Number: 2011SP020726

PATIENT
  Age: 23 Year
  Sex: Female

DRUGS (2)
  1. MERCILON (DESOGESTREL/ETHINYLESTRADIOL /00570801/) [Suspect]
     Indication: CONTRACEPTION
     Dates: start: 20110421
  2. MERCILON (DESOGESTREL/ETHINYLESTRADIOL /00570801/) [Suspect]
     Indication: CONTRACEPTION
     Dates: start: 20100101

REACTIONS (5)
  - VOMITING [None]
  - DIZZINESS [None]
  - VAGINAL HAEMORRHAGE [None]
  - LYMPHADENITIS [None]
  - INAPPROPRIATE SCHEDULE OF DRUG ADMINISTRATION [None]
